FAERS Safety Report 5327131-6 (Version None)
Quarter: 2007Q2

REPORT INFORMATION
  Report Type: 
  Country: None (occurrence: None)
  Receive Date: 20070514
  Receipt Date: 20070427
  Transmission Date: 20071010
  Serious: No
  Sender: FDA-Public Use
  Company Number: US020007

PATIENT
  Age: 2 Year
  Sex: Female

DRUGS (1)
  1. ACTIQ [Suspect]
     Dosage: ONCE BUCCAL
     Route: 002
     Dates: start: 20061201, end: 20061201

REACTIONS (1)
  - ACCIDENTAL DRUG INTAKE BY CHILD [None]
